FAERS Safety Report 7445082-8 (Version None)
Quarter: 2011Q2

REPORT INFORMATION
  Report Type: 
  Country: None (occurrence: None)
  Receive Date: 20110427
  Receipt Date: 20110427
  Transmission Date: 20111010
  Serious: Yes (Hospitalization)
  Sender: FDA-Public Use
  Company Number: None

PATIENT
  Sex: Female
  Weight: 14.7 kg

DRUGS (5)
  1. LOPERAMIDE [Concomitant]
  2. IRINOTECAN HCL [Suspect]
     Indication: NEUROBLASTOMA
     Dosage: 28 MG 5X EVERY 21 DAYS IVPB
     Route: 042
  3. CEFIXIME [Concomitant]
  4. VELCADE [Suspect]
     Indication: NEUROBLASTOMA
     Dosage: 0.74 MG 4X EVERY 21 DAYS IVP
     Route: 042
  5. ZOFRAN [Concomitant]

REACTIONS (3)
  - TACHYPNOEA [None]
  - INFLUENZA [None]
  - INSOMNIA [None]
